FAERS Safety Report 7630847-X (Version None)
Quarter: 2011Q3

REPORT INFORMATION
  Report Type: 
  Country: None (occurrence: None)
  Receive Date: 20110723
  Receipt Date: 20110721
  Transmission Date: 20111222
  Serious: Yes (Hospitalization)
  Sender: FDA-Public Use
  Company Number: IT-ABBOTT-11P-083-0729443-00

PATIENT
  Sex: Male

DRUGS (2)
  1. CLARITHROMYCIN [Suspect]
     Indication: OROPHARYNGEAL PAIN
     Dosage: DAILY
     Route: 048
     Dates: start: 20110502, end: 20110506
  2. KETOPROFEN [Suspect]
     Indication: OROPHARYNGEAL PAIN
     Dosage: DAILY
     Route: 048
     Dates: start: 20110505, end: 20110505

REACTIONS (3)
  - URTICARIA [None]
  - ANGIOEDEMA [None]
  - PRURITUS [None]
